FAERS Safety Report 4951795-X (Version None)
Quarter: 2006Q1

REPORT INFORMATION
  Report Type: 
  Country: None (occurrence: None)
  Receive Date: 20060322
  Receipt Date: 20060322
  Transmission Date: 20060701
  Serious: Yes (Life-Threatening, Hospitalization)
  Sender: FDA-Public Use
  Company Number: None

PATIENT
  Age: 82 Year
  Sex: Male
  Weight: 77 kg

DRUGS (3)
  1. GATIFLOXACIN [Suspect]
  2. WARFARIN SODIUM [Concomitant]
  3. LOVASTATIN [Concomitant]

REACTIONS (3)
  - BLOOD URINE PRESENT [None]
  - HAEMORRHAGE [None]
  - OCCULT BLOOD POSITIVE [None]
